FAERS Safety Report 5375735-7 (Version None)
Quarter: 2007Q2

REPORT INFORMATION
  Report Type: 
  Country: None (occurrence: None)
  Receive Date: 20070628
  Receipt Date: 20070618
  Transmission Date: 20071010
  Serious: Yes (Hospitalization)
  Sender: FDA-Public Use
  Company Number: 2007BI003362

PATIENT
  Age: 60 Year
  Sex: Female
  Weight: 56.246 kg

DRUGS (16)
  1. AVONEX [Suspect]
     Indication: MULTIPLE SCLEROSIS
     Dosage: 30 UG;QW;IM
     Route: 030
     Dates: start: 20000101, end: 20010101
  2. AVONEX [Suspect]
     Indication: MULTIPLE SCLEROSIS
     Dosage: 30 UG;QW;IM
     Route: 030
     Dates: start: 20020806, end: 20030521
  3. AVONEX [Suspect]
     Indication: MULTIPLE SCLEROSIS
     Dosage: 30 UG;QW;IM
     Route: 030
     Dates: start: 20040130
  4. NIACIN [Concomitant]
  5. TENORMIN [Concomitant]
  6. KLONOPIN [Concomitant]
  7. TRICOR [Concomitant]
  8. AGGRENOX [Concomitant]
  9. BACLOFEN [Concomitant]
  10. FOLGARD [Concomitant]
  11. EFFEXOR XR [Concomitant]
  12. M.V.I. [Concomitant]
  13. PEPCID AC [Concomitant]
  14. IMODIUM [Concomitant]
  15. BENADRYL [Concomitant]
  16. FISH OIL [Concomitant]

REACTIONS (4)
  - BACK PAIN [None]
  - NARCOLEPSY [None]
  - PAIN [None]
  - RESPIRATORY TRACT INFECTION [None]
